FAERS Safety Report 21168420 (Version 2)
Quarter: 2022Q3

REPORT INFORMATION
  Report Type: Report from Study
  Country: DE (occurrence: DE)
  Receive Date: 20220803
  Receipt Date: 20220908
  Transmission Date: 20221026
  Serious: Yes (Hospitalization, Other)
  Sender: FDA-Public Use
  Company Number: DE-MYLANLABS-2021M1093399

PATIENT
  Sex: Female

DRUGS (5)
  1. METHOTREXATE SODIUM [Suspect]
     Active Substance: METHOTREXATE SODIUM
     Indication: Axial spondyloarthritis
     Dosage: 10 MILLIGRAM
     Dates: start: 20160912
  2. METHOTREXATE SODIUM [Suspect]
     Active Substance: METHOTREXATE SODIUM
     Dosage: 25 MILLIGRAM
     Dates: start: 20160912
  3. UNSPECIFIED INGREDIENT [Suspect]
     Active Substance: UNSPECIFIED INGREDIENT
     Dosage: NO DOSE GIVEN
  4. HULIO [Suspect]
     Active Substance: ADALIMUMAB-FKJP
     Indication: Axial spondyloarthritis
     Dosage: FREQ:2 WK;50 MILLIGRAM, Q2W
     Dates: start: 20190806, end: 20200401
  5. NAPROXEN [Concomitant]
     Active Substance: NAPROXEN
     Dosage: 750 MILLIGRAM, QW (7 DAYS PER WEEK)
     Dates: start: 20171005, end: 20201106

REACTIONS (2)
  - Transitional cell cancer of the renal pelvis and ureter [Recovered/Resolved]
  - Product use in unapproved indication [Unknown]

NARRATIVE: CASE EVENT DATE: 20160912
